FAERS Safety Report 9199495 (Version 1)
Quarter: 2013Q1

REPORT INFORMATION
  Report Type: Spontaneous
  Country: US (occurrence: US)
  Receive Date: 20130329
  Receipt Date: 20130329
  Transmission Date: 20140127
  Serious: No
  Sender: FDA-Public Use
  Company Number: US-PFIZER INC-2013096392

PATIENT
  Age: 76 Year
  Sex: Male
  Weight: 72.56 kg

DRUGS (2)
  1. LATANOPROST [Suspect]
     Indication: GLAUCOMA
     Dosage: UNK
     Dates: start: 201302, end: 201303
  2. PRILOSEC [Concomitant]
     Indication: DYSPEPSIA
     Dosage: UNK, 1X/DAY

REACTIONS (4)
  - Ocular hyperaemia [Unknown]
  - Intraocular pressure increased [Unknown]
  - Headache [Unknown]
  - Eye irritation [Unknown]
